FAERS Safety Report 20789399 (Version 1)
Quarter: 2022Q2

REPORT INFORMATION
  Report Type: Spontaneous
  Country: US (occurrence: None)
  Receive Date: 20220504
  Receipt Date: 20220504
  Transmission Date: 20220721
  Serious: Yes (Hospitalization)
  Sender: FDA-Public Use
  Company Number: None

PATIENT
  Sex: Male

DRUGS (1)
  1. ALLOPURINOL [Suspect]
     Active Substance: ALLOPURINOL
     Indication: Product used for unknown indication
     Dosage: 100MG DAILY BY MOUTH?
     Route: 048
     Dates: start: 202201

REACTIONS (5)
  - Groin pain [None]
  - Impaired healing [None]
  - Urethral cancer [None]
  - Pulmonary mass [None]
  - Malignant neoplasm progression [None]
